FAERS Safety Report 14655514 (Version 1)
Quarter: 2018Q1

REPORT INFORMATION
  Report Type: Spontaneous
  Country: ES (occurrence: ES)
  Receive Date: 20180319
  Receipt Date: 20180319
  Transmission Date: 20180509
  Serious: Yes (Hospitalization, Other)
  Sender: FDA-Public Use
  Company Number: ES-BAYER-2018-046989

PATIENT
  Sex: Male

DRUGS (5)
  1. ACETYLSALICYLIC ACID({=100 MG) [Suspect]
     Active Substance: ASPIRIN
     Indication: ACUTE CORONARY SYNDROME
     Dosage: 100 DF, QD
     Dates: start: 20110610
  2. PRAVASTATIN. [Concomitant]
     Active Substance: PRAVASTATIN
     Indication: HYPERCHOLESTEROLAEMIA
     Dosage: UNK
  3. IVABRADINE [Concomitant]
     Active Substance: IVABRADINE
     Indication: HEART RATE INCREASED
     Dosage: UNK
  4. AMIODARONE [Concomitant]
     Active Substance: AMIODARONE
     Indication: ATRIAL FIBRILLATION
     Dosage: UNK
     Dates: start: 20100501
  5. SINTROM [Suspect]
     Active Substance: ACENOCOUMAROL
     Dosage: 14 MG, OW
     Dates: start: 20151125, end: 20180307

REACTIONS (2)
  - Chest pain [Recovered/Resolved]
  - Electrocardiogram ST segment elevation [None]

NARRATIVE: CASE EVENT DATE: 20161027
